FAERS Safety Report 9639534 (Version 2)
Quarter: 2013Q4

REPORT INFORMATION
  Report Type: Spontaneous
  Country: BR (occurrence: BR)
  Receive Date: 20131023
  Receipt Date: 20131023
  Transmission Date: 20140711
  Serious: Yes (Other)
  Sender: FDA-Public Use
  Company Number: BR-BIOGENIDEC-2012BI058781

PATIENT
  Sex: Female
  Weight: 79 kg

DRUGS (1)
  1. TYSABRI [Suspect]
     Indication: MULTIPLE SCLEROSIS
     Route: 042
     Dates: start: 20120825

REACTIONS (8)
  - Medical device implantation [Unknown]
  - Dysgeusia [Not Recovered/Not Resolved]
  - Decreased appetite [Not Recovered/Not Resolved]
  - Mental disorder [Unknown]
  - Urinary tract infection [Unknown]
  - Decubitus ulcer [Not Recovered/Not Resolved]
  - Accident [Recovered/Resolved]
  - Diarrhoea [Not Recovered/Not Resolved]
